FAERS Safety Report 24277475 (Version 1)
Quarter: 2024Q3

REPORT INFORMATION
  Report Type: Spontaneous
  Country: US (occurrence: None)
  Receive Date: 20240830
  Receipt Date: 20240830
  Transmission Date: 20241016
  Serious: Yes (Hospitalization)
  Sender: Public
  Company Number: None

PATIENT
  Age: 66 Year
  Sex: Male

DRUGS (7)
  1. CAPECITABINE [Suspect]
     Active Substance: CAPECITABINE
     Indication: Colon cancer
     Dosage: FREQUENCY : TWICE A DAY;?
     Route: 048
     Dates: start: 20240626
  2. OXALIPLATIN [Concomitant]
     Active Substance: OXALIPLATIN
  3. CHLORTHALIDONE [Concomitant]
  4. GABAPENTIN [Concomitant]
  5. GLYBURIDE [Concomitant]
     Active Substance: GLYBURIDE
  6. LEVOTHYROXINE [Concomitant]
  7. POTASSIUM CHLORIDE [Concomitant]

REACTIONS (2)
  - Myocardial infarction [None]
  - Gastric haemorrhage [None]

NARRATIVE: CASE EVENT DATE: 20240813
